FAERS Safety Report 12253938 (Version 1)
Quarter: 2016Q2

REPORT INFORMATION
  Report Type: Spontaneous
  Country: US (occurrence: US)
  Receive Date: 20160411
  Receipt Date: 20160411
  Transmission Date: 20160815
  Serious: No
  Sender: FDA-Public Use
  Company Number: US-PFIZER INC-2016162907

PATIENT
  Age: 56 Year
  Sex: Female
  Weight: 74.83 kg

DRUGS (1)
  1. LINEZOLID. [Suspect]
     Active Substance: LINEZOLID
     Dosage: 600 MG, UNK

REACTIONS (6)
  - Condition aggravated [Unknown]
  - Ear pain [Unknown]
  - Nausea [Unknown]
  - Diarrhoea [Unknown]
  - Sleep disorder [Unknown]
  - Headache [Unknown]
